FAERS Safety Report 19292434 (Version 1)
Quarter: 2021Q2

REPORT INFORMATION
  Report Type: Spontaneous
  Country: US (occurrence: US)
  Receive Date: 20210524
  Receipt Date: 20210524
  Transmission Date: 20210717
  Serious: No
  Sender: FDA-Public Use
  Company Number: NVSC2021US106500

PATIENT
  Sex: Female

DRUGS (3)
  1. METFORMIN HCL TABLETS [Suspect]
     Active Substance: METFORMIN HYDROCHLORIDE
     Indication: PRODUCT USED FOR UNKNOWN INDICATION
     Dosage: UNK
     Route: 065
  2. PANTOPRAZOLE [Concomitant]
     Active Substance: PANTOPRAZOLE
     Indication: DYSPEPSIA
     Dosage: 40 MG, QD (BEFORE FOOD)
     Route: 065
  3. ROSUVASTATIN. [Concomitant]
     Active Substance: ROSUVASTATIN
     Indication: BLOOD CHOLESTEROL
     Dosage: 10 MG
     Route: 065

REACTIONS (15)
  - Joint stiffness [Unknown]
  - Arthralgia [Unknown]
  - Dizziness [Unknown]
  - Palpitations [Unknown]
  - Cough [Unknown]
  - Parosmia [Unknown]
  - Hypertension [Unknown]
  - Headache [Unknown]
  - Rash [Unknown]
  - Asthenia [Unknown]
  - Hyperhidrosis [Unknown]
  - Blood glucose increased [Unknown]
  - Nausea [Unknown]
  - Fatigue [Unknown]
  - Nervousness [Unknown]
